FAERS Safety Report 7031467-0 (Version None)
Quarter: 2010Q4

REPORT INFORMATION
  Report Type: 
  Country: None (occurrence: None)
  Receive Date: 20101006
  Receipt Date: 20100924
  Transmission Date: 20110411
  Serious: Yes (Other)
  Sender: FDA-Public Use
  Company Number: SG-PFIZER INC-2010121807

PATIENT
  Age: 69 Year
  Sex: Male

DRUGS (1)
  1. PHENYTOIN [Suspect]
     Dosage: UNK
     Route: 048

REACTIONS (3)
  - ORAL DISORDER [None]
  - RASH MACULO-PAPULAR [None]
  - URTICARIA [None]
